FAERS Safety Report 23805312 (Version 5)
Quarter: 2025Q3

REPORT INFORMATION
  Report Type: Report from Study
  Country: CL (occurrence: CL)
  Receive Date: 20240502
  Receipt Date: 20250818
  Transmission Date: 20251020
  Serious: Yes (Hospitalization, Other)
  Sender: SANDOZ
  Company Number: CL-002147023-NVSC2024CL089825

PATIENT
  Age: 64 Year
  Sex: Female

DRUGS (2)
  1. HYRIMOZ [Suspect]
     Active Substance: ADALIMUMAB-ADAZ
     Indication: Psoriatic arthropathy
     Dosage: 40 MG, Q2W
     Route: 058
     Dates: start: 20230905
  2. HYRIMOZ [Suspect]
     Active Substance: ADALIMUMAB-ADAZ
     Route: 058
     Dates: start: 20240419

REACTIONS (13)
  - Pneumonia [Recovered/Resolved]
  - Aphonia [Unknown]
  - Pneumonia [Recovering/Resolving]
  - Cough [Unknown]
  - Nasal congestion [Unknown]
  - Decreased immune responsiveness [Recovering/Resolving]
  - Oropharyngeal pain [Recovering/Resolving]
  - Hypovitaminosis [Unknown]
  - Nutritional condition abnormal [Unknown]
  - Depression [Unknown]
  - Grief reaction [Unknown]
  - Psoriasis [Recovering/Resolving]
  - Nasopharyngitis [Recovered/Resolved]

NARRATIVE: CASE EVENT DATE: 20240401
